FAERS Safety Report 5792885-1 (Version None)
Quarter: 2008Q2

REPORT INFORMATION
  Report Type: 
  Country: None (occurrence: None)
  Receive Date: 20080624
  Receipt Date: 20080609
  Transmission Date: 20081010
  Serious: Yes (Death)
  Sender: FDA-Public Use
  Company Number: 19551

PATIENT
  Age: 68 Year
  Sex: Female

DRUGS (6)
  1. DAUNORUBICIN. MFR: TEVA [Suspect]
     Indication: ACUTE MYELOID LEUKAEMIA
     Dosage: 60 MG/M2 QD
  2. MITOXANTRONE [Suspect]
     Indication: ACUTE MYELOID LEUKAEMIA
  3. ETOPOSIDE [Suspect]
     Dosage: 100 MG/M2 QD
  4. CYTARABINE [Suspect]
     Indication: ACUTE MYELOID LEUKAEMIA
     Dosage: 100 MG/M2 QD
  5. NEUPOGEN [Suspect]
     Indication: ACUTE MYELOID LEUKAEMIA
     Dosage: 10 MCG/KG DAILY
  6. MELPHALAN [Suspect]
     Indication: ACUTE MYELOID LEUKAEMIA

REACTIONS (2)
  - ACUTE MYELOID LEUKAEMIA RECURRENT [None]
  - MYELODYSPLASTIC SYNDROME [None]
